FAERS Safety Report 25232649 (Version 2)
Quarter: 2025Q2

REPORT INFORMATION
  Report Type: Spontaneous
  Country: US (occurrence: US)
  Receive Date: 20250424
  Receipt Date: 20250520
  Transmission Date: 20250716
  Serious: No
  Sender: ALMUS
  Company Number: US-ALMIRALL-US-2025-1057

PATIENT
  Age: 67 Year
  Sex: Male
  Weight: 86.64 kg

DRUGS (1)
  1. KLISYRI [Suspect]
     Active Substance: TIRBANIBULIN
     Indication: Actinic keratosis
     Route: 061
     Dates: start: 2024

REACTIONS (1)
  - Therapeutic product effect incomplete [Unknown]
